FAERS Safety Report 20239091 (Version 4)
Quarter: 2022Q1

REPORT INFORMATION
  Report Type: Report from Study
  Country: US (occurrence: US)
  Receive Date: 20211228
  Receipt Date: 20220111
  Transmission Date: 20220424
  Serious: Yes (Death, Hospitalization)
  Sender: FDA-Public Use
  Company Number: US-PFIZER INC-202101806538

PATIENT
  Age: 29 Year
  Sex: Male
  Weight: 94.5 kg

DRUGS (8)
  1. INOTUZUMAB OZOGAMICIN [Suspect]
     Active Substance: INOTUZUMAB OZOGAMICIN
  2. VINCRISTINE SULFATE [Suspect]
     Active Substance: VINCRISTINE SULFATE
     Indication: B precursor type acute leukaemia
     Dosage: 2 MG  (1.5 MG/M2)  ON DAY 15
     Route: 042
     Dates: start: 20211206, end: 20211206
  3. CYTARABINE [Suspect]
     Active Substance: CYTARABINE
     Indication: B precursor type acute leukaemia
     Dosage: 75 MG/M2 IV OR SC ON DAYS 1-4, 8-11
     Dates: start: 20211122, end: 20211202
  4. METHOTREXATE SODIUM [Suspect]
     Active Substance: METHOTREXATE SODIUM
     Indication: B precursor type acute leukaemia
     Dosage: 15 MG ON DAYS 1,8
     Route: 037
     Dates: start: 20211124, end: 20211201
  5. RITUXIMAB [Suspect]
     Active Substance: RITUXIMAB
     Indication: B precursor type acute leukaemia
     Dosage: 375 MG/M2 ON DAYS 1, 8
     Route: 042
     Dates: start: 20211122, end: 20211129
  6. CYCLOPHOSPHAMIDE [Suspect]
     Active Substance: CYCLOPHOSPHAMIDE
     Indication: B precursor type acute leukaemia
     Dosage: 1000 MG/M2, ON DAY 1
     Route: 042
     Dates: start: 20211122, end: 20211122
  7. MERCAPTOPURINE [Suspect]
     Active Substance: MERCAPTOPURINE
     Indication: B precursor type acute leukaemia
     Dosage: 60 MG/M2 ON DAYS 1-14 AND 29-42
     Route: 048
     Dates: start: 20211116, end: 20211208
  8. ONCASPAR [Suspect]
     Active Substance: PEGASPARGASE
     Indication: B precursor type acute leukaemia
     Dosage: 3750 IU (2000 IU/M2)  ON DAY 15
     Route: 042
     Dates: start: 20211206, end: 20211206

REACTIONS (3)
  - Sepsis [Fatal]
  - Seizure [Not Recovered/Not Resolved]
  - Febrile neutropenia [Not Recovered/Not Resolved]

NARRATIVE: CASE EVENT DATE: 20211212
